FAERS Safety Report 18803050 (Version 2)
Quarter: 2021Q1

REPORT INFORMATION
  Report Type: Spontaneous
  Country: DE (occurrence: DE)
  Receive Date: 20210129
  Receipt Date: 20210206
  Transmission Date: 20210419
  Serious: Yes (Other)
  Sender: FDA-Public Use
  Company Number: DE-AUROBINDO-AUR-APL-2021-003052

PATIENT
  Age: 49 Year
  Sex: Female

DRUGS (6)
  1. BUPROPION. [Suspect]
     Active Substance: BUPROPION
     Indication: DEPRESSION
     Dosage: UNK
     Route: 065
     Dates: start: 2016
  2. BUPROPION. [Suspect]
     Active Substance: BUPROPION
     Dosage: UNK, UP TO 300 MG
     Route: 065
     Dates: start: 2016
  3. ARIPIPRAZOLE 5 MG [Suspect]
     Active Substance: ARIPIPRAZOLE
     Indication: DEPRESSION
     Dosage: 5 MILLIGRAM
     Route: 065
     Dates: start: 2019
  4. BUPROPION. [Suspect]
     Active Substance: BUPROPION
     Dosage: 450 MILLIGRAM
     Route: 065
     Dates: start: 2019
  5. MILNANEURAX [Suspect]
     Active Substance: MILNACIPRAN HYDROCHLORIDE
     Dosage: 50 MILLIGRAM, TWO TIMES A DAY
     Route: 065
     Dates: start: 2017
  6. MILNANEURAX [Suspect]
     Active Substance: MILNACIPRAN HYDROCHLORIDE
     Indication: DEPRESSION
     Dosage: 50 MILLIGRAM, TWO TIMES A DAY
     Route: 065
     Dates: start: 2016

REACTIONS (3)
  - Headache [Unknown]
  - Eye pain [Unknown]
  - Angle closure glaucoma [Unknown]

NARRATIVE: CASE EVENT DATE: 202012
